FAERS Safety Report 23253171 (Version 1)
Quarter: 2023Q4

REPORT INFORMATION
  Report Type: Spontaneous
  Country: TN (occurrence: TN)
  Receive Date: 20231202
  Receipt Date: 20231202
  Transmission Date: 20240110
  Serious: Yes (Death, Other)
  Sender: FDA-Public Use
  Company Number: TN-PURACAP-TN-2023EPCLIT01786

PATIENT
  Age: 70 Year
  Sex: Female

DRUGS (1)
  1. ALLOPURINOL [Suspect]
     Active Substance: ALLOPURINOL
     Indication: Product used for unknown indication
     Route: 065

REACTIONS (2)
  - Haemophagocytic lymphohistiocytosis [Fatal]
  - Drug reaction with eosinophilia and systemic symptoms [Fatal]
